FAERS Safety Report 8589548-6 (Version None)
Quarter: 2012Q3

REPORT INFORMATION
  Report Type: 
  Country: None (occurrence: None)
  Receive Date: 20120813
  Receipt Date: 20120718
  Transmission Date: 20120928
  Serious: Yes (Other)
  Sender: FDA-Public Use
  Company Number: JP-009507513-1208JPN004986

PATIENT

DRUGS (5)
  1. REBETOL [Suspect]
     Indication: HEPATITIS C
     Route: 048
     Dates: start: 20120515, end: 20120528
  2. TELAVIC [Suspect]
     Indication: HEPATITIS C
     Route: 048
     Dates: start: 20120515, end: 20120703
  3. PEG-INTRON [Suspect]
     Indication: HEPATITIS C
     Dosage: 1.5MCG/KG/WEEK
     Route: 058
     Dates: start: 20120515, end: 20120703
  4. REBETOL [Suspect]
     Route: 048
     Dates: start: 20120529, end: 20120604
  5. REBETOL [Suspect]
     Route: 048
     Dates: start: 20120605, end: 20120703

REACTIONS (1)
  - PNEUMONIA [None]
